FAERS Safety Report 19795100 (Version 1)
Quarter: 2021Q3

REPORT INFORMATION
  Report Type: Spontaneous
  Country: DK (occurrence: DK)
  Receive Date: 20210907
  Receipt Date: 20210907
  Transmission Date: 20211014
  Serious: Yes (Hospitalization)
  Sender: FDA-Public Use
  Company Number: DK-TEVA-2021-DK-1948596

PATIENT
  Age: 69 Year
  Sex: Male

DRUGS (4)
  1. FRAGMIN [Suspect]
     Active Substance: DALTEPARIN SODIUM
     Indication: THROMBOSIS PROPHYLAXIS
     Dosage: STRENGTH: 15.000 ANT?XA IE, 15 IU
     Dates: start: 202009
  2. CONTALGIN [Concomitant]
     Active Substance: MORPHINE SULFATE
     Indication: PAIN
     Dates: start: 20210122
  3. PREDNISOLON ^ACTAVIS^ [Suspect]
     Active Substance: PREDNISOLONE
     Indication: NEOPLASM MALIGNANT
     Dosage: DOSAGE: SHIFTING, BUT UP UNTIL ADR START: 100 MG (4 TABLETS) DAILY. STREGNTH: 25 MG.
     Route: 048
     Dates: start: 201902
  4. PANTOPRAZOL ^STADA^ [Concomitant]
     Indication: PROPHYLAXIS AGAINST GASTROINTESTINAL ULCER
     Dates: start: 20190130

REACTIONS (2)
  - Osteoporosis [Not Recovered/Not Resolved]
  - Intervertebral disc compression [Unknown]

NARRATIVE: CASE EVENT DATE: 202102
